FAERS Safety Report 24573829 (Version 2)
Quarter: 2025Q3

REPORT INFORMATION
  Report Type: Spontaneous
  Country: AR (occurrence: AR)
  Receive Date: 20241103
  Receipt Date: 20250725
  Transmission Date: 20251020
  Serious: Yes (Other)
  Sender: SANDOZ
  Company Number: AR-SANDOZ-SDZ2024AR091062

PATIENT
  Sex: Female
  Weight: 19.2 kg

DRUGS (2)
  1. OMNITROPE [Suspect]
     Active Substance: SOMATROPIN
     Indication: Prader-Willi syndrome
     Dosage: 0.45 MG, QD
     Route: 058
     Dates: start: 20240730
  2. OMNITROPE [Suspect]
     Active Substance: SOMATROPIN
     Indication: Growth retardation

REACTIONS (4)
  - Application site bruise [Unknown]
  - Malnutrition [Unknown]
  - Dysphagia [Unknown]
  - Underweight [Unknown]

NARRATIVE: CASE EVENT DATE: 20240101
